FAERS Safety Report 7659402-2 (Version None)
Quarter: 2011Q3

REPORT INFORMATION
  Report Type: 
  Country: None (occurrence: None)
  Receive Date: 20110805
  Receipt Date: 20110727
  Transmission Date: 20111222
  Serious: Yes (Hospitalization, Other)
  Sender: FDA-Public Use
  Company Number: US-ASTRAZENECA-2011SE45117

PATIENT
  Sex: Female

DRUGS (3)
  1. LIPITOR [Concomitant]
  2. CRESTOR [Concomitant]
  3. NEXIUM [Suspect]
     Route: 048

REACTIONS (3)
  - RENAL CANCER [None]
  - NEPHRECTOMY [None]
  - MYOCARDIAL INFARCTION [None]
